FAERS Safety Report 5297408-1 (Version None)
Quarter: 2007Q2

REPORT INFORMATION
  Report Type: 
  Country: None (occurrence: None)
  Receive Date: 20070416
  Receipt Date: 20070410
  Transmission Date: 20071010
  Serious: Yes (Hospitalization, Other)
  Sender: FDA-Public Use
  Company Number: 2007UW06951

PATIENT
  Age: 57 Year
  Sex: Male
  Weight: 69.1 kg

DRUGS (11)
  1. TOPROL-XL [Suspect]
     Indication: HYPERTENSION
     Route: 048
  2. XANAX [Suspect]
     Indication: SLEEP DISORDER
     Route: 048
  3. PLACEBO [Suspect]
     Indication: COLORECTAL CANCER METASTATIC
     Route: 048
     Dates: start: 20030811
  4. IRINOTECAN HCL [Suspect]
     Indication: COLORECTAL CANCER METASTATIC
     Dosage: 125 MG/M2 DAY 1 AND 8 CYCLE
     Route: 042
     Dates: start: 20030811, end: 20030818
  5. FLUOROURACIL [Suspect]
     Indication: COLORECTAL CANCER METASTATIC
     Dosage: 500 MG/M2, DAY 1 AND 8 CYCLE
     Route: 042
     Dates: start: 20030811, end: 20030818
  6. LEUCOVORIN CALCIUM [Suspect]
     Indication: COLORECTAL CANCER METASTATIC
     Dosage: 20 MG/M2, CYCLE 1, DAY 1, AND DAY 8
     Route: 042
     Dates: start: 20030811, end: 20030818
  7. ZETIA [Suspect]
     Indication: BLOOD CHOLESTEROL
     Route: 048
  8. PROTONIX [Suspect]
     Route: 048
  9. CIPROFLOXACIN HCL [Suspect]
     Indication: PROPHYLAXIS
     Route: 048
  10. ACETYLSALICYLIC ACID SRT [Suspect]
     Indication: PROPHYLAXIS
     Route: 048
     Dates: start: 19860101, end: 20030810
  11. AMIODARONE HCL [Suspect]
     Route: 048

REACTIONS (3)
  - ANGINA PECTORIS [None]
  - CONSTIPATION [None]
  - INTESTINAL OBSTRUCTION [None]
